FAERS Safety Report 4804877-7 (Version None)
Quarter: 2005Q4

REPORT INFORMATION
  Report Type: 
  Country: None (occurrence: None)
  Receive Date: 20051020
  Receipt Date: 20050816
  Transmission Date: 20060501
  Serious: Yes (Death)
  Sender: FDA-Public Use
  Company Number: US-BRISTOL-MYERS SQUIBB COMPANY-13080403

PATIENT
  Age: 75 Year
  Sex: Female

DRUGS (9)
  1. HYDREA [Suspect]
     Indication: ESSENTIAL THROMBOCYTHAEMIA
     Route: 048
  2. AGGRENOX [Concomitant]
  3. AVAPRO [Concomitant]
  4. ATENOLOL [Concomitant]
  5. DILANTIN [Concomitant]
  6. CLONAZEPAM [Concomitant]
  7. BACTRIM [Concomitant]
     Indication: URINARY TRACT INFECTION
  8. SEROQUEL [Concomitant]
  9. ZOLOFT [Concomitant]

REACTIONS (1)
  - DEATH [None]
